FAERS Safety Report 17561394 (Version 8)
Quarter: 2023Q1

REPORT INFORMATION
  Report Type: Spontaneous
  Country: US (occurrence: US)
  Receive Date: 20200319
  Receipt Date: 20230206
  Transmission Date: 20230418
  Serious: No
  Sender: FDA-Public Use
  Company Number: US-VERTEX PHARMACEUTICALS-2020-005537

PATIENT
  Sex: Female

DRUGS (30)
  1. TRIKAFTA [Suspect]
     Active Substance: ELEXACAFTOR\IVACAFTOR\TEZACAFTOR
     Indication: Cystic fibrosis
     Dosage: 2 ORANGE TABS (100MG ELEXA/50MG TEZA/75MG IVA) AM AND 1 BLUE TAB (150MG IVA) PM
     Route: 048
     Dates: start: 20200306
  2. TRIKAFTA [Suspect]
     Active Substance: ELEXACAFTOR\IVACAFTOR\TEZACAFTOR
     Dosage: UNK
     Route: 048
  3. IBUPROFEN [Suspect]
     Active Substance: IBUPROFEN
     Indication: Headache
     Dosage: SMALL DOSES
     Route: 048
  4. DEXILANT [Concomitant]
     Active Substance: DEXLANSOPRAZOLE
  5. CAYSTON [Concomitant]
     Active Substance: AZTREONAM
     Dosage: UNK
  6. ADVAIR HFA [Concomitant]
     Active Substance: FLUTICASONE PROPIONATE\SALMETEROL XINAFOATE
  7. ALBUTEROL [Concomitant]
     Active Substance: ALBUTEROL
  8. AZITHROMYCIN [Concomitant]
     Active Substance: AZITHROMYCIN
     Dosage: 1 DOSAGE FORM, MON, WED, FRI
     Route: 048
     Dates: start: 20200915
  9. RANITIDINE [Concomitant]
     Active Substance: RANITIDINE
  10. CREON [Concomitant]
     Active Substance: PANCRELIPASE AMYLASE\PANCRELIPASE LIPASE\PANCRELIPASE PROTEASE
     Dosage: 2 DOSAGE FORM, WITH EACH MEAL
     Route: 048
  11. CREON [Concomitant]
     Active Substance: PANCRELIPASE AMYLASE\PANCRELIPASE LIPASE\PANCRELIPASE PROTEASE
     Dosage: 3-4 TABS, 3-4 TIMES A DAY
  12. ESTRADIOL [Concomitant]
     Active Substance: ESTRADIOL
  13. MIRALAX [Concomitant]
     Active Substance: POLYETHYLENE GLYCOL 3350
  14. PULMOZYME [Concomitant]
     Active Substance: DORNASE ALFA
     Dosage: 1 NEBULIZED VIAL PER DAY
     Dates: start: 20200302
  15. CHOLECALCIFEROL [Concomitant]
     Active Substance: CHOLECALCIFEROL
     Dosage: 50000 UNIT WAFER, 1 DOSAGE FORM, WEEKLY
     Route: 048
  16. SODIUM CHLORIDE [Concomitant]
     Active Substance: SODIUM CHLORIDE
  17. ALBUTEROL [Concomitant]
     Active Substance: ALBUTEROL
  18. VITAMIN D [Concomitant]
     Active Substance: VITAMIN D NOS
  19. FLUTICASONE PROPIONATE [Concomitant]
     Active Substance: FLUTICASONE PROPIONATE
  20. CALCIUM [Concomitant]
     Active Substance: CALCIUM
  21. PREDNISONE [Concomitant]
     Active Substance: PREDNISONE
  22. PANTOPRAZOLE SODIUM [Concomitant]
     Active Substance: PANTOPRAZOLE SODIUM
  23. LUTEINS ZEAKSANTIN [Concomitant]
  24. HUMALOG [Concomitant]
     Active Substance: INSULIN LISPRO
     Dosage: 100 UNIT/ML
     Route: 058
  25. TRESIBA [Concomitant]
     Active Substance: INSULIN DEGLUDEC
     Dosage: 100 UNIT/ML
     Route: 058
  26. VENTOLIN HFA [Concomitant]
     Active Substance: ALBUTEROL SULFATE
     Dosage: 1 PUFF, EVERY 4 HOURS
     Dates: start: 20200302
  27. SODIUM CHLORIDE [Concomitant]
     Active Substance: SODIUM CHLORIDE
     Dosage: UNK, BID
     Dates: start: 20191104
  28. ALBUTEROL SULFATE [Concomitant]
     Active Substance: ALBUTEROL SULFATE
     Dosage: 2.5 MG/ 3 ML; EVERY 4 HRS,
     Dates: start: 20191104
  29. FLONASE [Concomitant]
     Active Substance: FLUTICASONE PROPIONATE
  30. WIXELA INHUB [Concomitant]
     Active Substance: FLUTICASONE PROPIONATE\SALMETEROL XINAFOATE

REACTIONS (22)
  - Weight increased [Unknown]
  - Pain [Recovered/Resolved]
  - Gastrointestinal pain [Recovered/Resolved]
  - Gastrointestinal sounds abnormal [Recovered/Resolved]
  - Oedema peripheral [Unknown]
  - Productive cough [Recovered/Resolved]
  - Peripheral coldness [Not Recovered/Not Resolved]
  - Muscle fatigue [Recovered/Resolved]
  - Rash erythematous [Recovered/Resolved]
  - Headache [Not Recovered/Not Resolved]
  - Blood pressure increased [Unknown]
  - Abdominal pain upper [Recovered/Resolved]
  - Abdominal tenderness [Recovered/Resolved]
  - Diarrhoea [Recovering/Resolving]
  - Vomiting [Unknown]
  - Nausea [Unknown]
  - Abnormal faeces [Unknown]
  - Malabsorption [Not Recovered/Not Resolved]
  - Haemoptysis [Unknown]
  - Myalgia [Not Recovered/Not Resolved]
  - Respiratory tract congestion [Not Recovered/Not Resolved]
  - Sinus disorder [Not Recovered/Not Resolved]

NARRATIVE: CASE EVENT DATE: 20200101
